FAERS Safety Report 8239655-2 (Version None)
Quarter: 2012Q1

REPORT INFORMATION
  Report Type: 
  Country: None (occurrence: None)
  Receive Date: 20120328
  Receipt Date: 20120214
  Transmission Date: 20120608
  Serious: Yes (Other)
  Sender: FDA-Public Use
  Company Number: US-BAYER-2011-114549

PATIENT
  Age: 89 Year
  Sex: Female
  Weight: 57 kg

DRUGS (6)
  1. ONE A DAY WOMEN'S 50+ ADVANTAGE [Suspect]
     Dosage: 1 DF, QD
  2. ALEVE (CAPLET) [Suspect]
     Indication: ANALGESIC THERAPY
     Dosage: UNK, PRN
  3. MICRO-K [Concomitant]
  4. SYNTHROID [Concomitant]
  5. ATENOLOL AND CHLORTHALIDONE [Concomitant]
  6. ONE A DAY WOMEN'S 50+ ADVANTAGE [Suspect]
     Dosage: 1 DF, QD

REACTIONS (9)
  - PAIN IN EXTREMITY [None]
  - HAEMATOCHEZIA [None]
  - VASODILATATION [None]
  - GASTROOESOPHAGEAL REFLUX DISEASE [None]
  - TINNITUS [None]
  - VISION BLURRED [None]
  - BURNING SENSATION [None]
  - DIZZINESS [None]
  - NAUSEA [None]
